FAERS Safety Report 17241697 (Version 1)
Quarter: 2020Q1

REPORT INFORMATION
  Report Type: Spontaneous
  Country: US (occurrence: US)
  Receive Date: 20200106
  Receipt Date: 20200106
  Transmission Date: 20200409
  Serious: Yes (Disabling)
  Sender: FDA-Public Use
  Company Number: None

PATIENT
  Age: 15 Year
  Sex: Male
  Weight: 57.6 kg

DRUGS (1)
  1. CLARAVIS [Suspect]
     Active Substance: ISOTRETINOIN
     Indication: ACNE
     Route: 048
     Dates: start: 20190926, end: 20191205

REACTIONS (9)
  - Depression [None]
  - Peyronie^s disease [None]
  - Scar [None]
  - Mood swings [None]
  - Decreased interest [None]
  - Erectile dysfunction [None]
  - Libido decreased [None]
  - Lip dry [None]
  - Arthralgia [None]

NARRATIVE: CASE EVENT DATE: 20191108
